FAERS Safety Report 8326448 (Version 2)
Quarter: 2013Q4

REPORT INFORMATION
  Report Type: Spontaneous
  Country: US (occurrence: US)
  Receive Date: 20120109
  Receipt Date: 20131206
  Transmission Date: 20140711
  Serious: Yes (Hospitalization, Other)
  Sender: FDA-Public Use
  Company Number: US-BAYER-2012-000733

PATIENT
  Age: 35 Year
  Sex: Female

DRUGS (7)
  1. YAZ [Suspect]
  2. YASMIN [Suspect]
  3. DARVOCET-N [Concomitant]
     Indication: PAIN
  4. TOBRAMYCIN [Concomitant]
     Dosage: 0.3%
  5. TERBINAFINE [Concomitant]
  6. MOTRIN [Concomitant]
  7. IMODIUM [Concomitant]

REACTIONS (10)
  - Gallbladder disorder [None]
  - Gallbladder non-functioning [None]
  - Cholecystitis [None]
  - Cholecystitis chronic [None]
  - Injury [None]
  - Pain [None]
  - General physical health deterioration [None]
  - Anxiety [None]
  - Anhedonia [None]
  - Internal injury [None]
